FAERS Safety Report 18761073 (Version 2)
Quarter: 2021Q1

REPORT INFORMATION
  Report Type: Spontaneous
  Country: NO (occurrence: NO)
  Receive Date: 20210119
  Receipt Date: 20210125
  Transmission Date: 20210419
  Serious: Yes (Other)
  Sender: FDA-Public Use
  Company Number: NO-BAXTER-2021BAX000918

PATIENT
  Sex: Female

DRUGS (4)
  1. FENTANYL. [Suspect]
     Active Substance: FENTANYL
     Indication: ANAESTHESIA PROCEDURE
     Route: 065
     Dates: start: 2010
  2. REMIFENTANIL [Suspect]
     Active Substance: REMIFENTANIL
     Indication: ANAESTHESIA PROCEDURE
     Route: 065
     Dates: start: 2010
  3. SUPRANE [Suspect]
     Active Substance: DESFLURANE
     Indication: ANAESTHESIA PROCEDURE
     Route: 055
     Dates: start: 2010
  4. KETORAX [Suspect]
     Active Substance: KETOBEMIDONE HYDROCHLORIDE
     Indication: PROCEDURAL PAIN
     Route: 065
     Dates: start: 2010

REACTIONS (2)
  - Procedural pain [Unknown]
  - Hallucination [Unknown]

NARRATIVE: CASE EVENT DATE: 2010
